FAERS Safety Report 17056289 (Version 1)
Quarter: 2019Q4

REPORT INFORMATION
  Report Type: Report from Study
  Country: US (occurrence: US)
  Receive Date: 20191121
  Receipt Date: 20191121
  Transmission Date: 20200122
  Serious: No
  Sender: FDA-Public Use
  Company Number: NVSC2019US042400

PATIENT
  Sex: Female

DRUGS (1)
  1. GILENYA [Suspect]
     Active Substance: FINGOLIMOD HYDROCHLORIDE
     Indication: MULTIPLE SCLEROSIS
     Dosage: 0.5 MG, QD
     Route: 048
     Dates: start: 20190714

REACTIONS (7)
  - Pain [Unknown]
  - Chills [Unknown]
  - Vomiting [Unknown]
  - Pyrexia [Unknown]
  - Fatigue [Unknown]
  - Nausea [Unknown]
  - Gastroenteritis viral [Unknown]
